FAERS Safety Report 4635654-8 (Version None)
Quarter: 2005Q2

REPORT INFORMATION
  Report Type: 
  Country: None (occurrence: None)
  Receive Date: 20050414
  Receipt Date: 20050304
  Transmission Date: 20051028
  Serious: Yes (Hospitalization)
  Sender: FDA-Public Use
  Company Number: 10509

PATIENT
  Sex: Female

DRUGS (7)
  1. FLUOROURACIL [Suspect]
     Indication: METASTASES TO LIVER
     Dosage: 400 MG IV
     Route: 042
     Dates: start: 20050209, end: 20050209
  2. LEUCOVORIN CALCIUM [Suspect]
     Indication: METASTASES TO LIVER
     Dosage: 400 MG IV
     Route: 042
     Dates: start: 20050209, end: 20050209
  3. OXALIPLATIN [Suspect]
     Indication: METASTASES TO LIVER
     Dosage: 140 MG IV
     Route: 042
     Dates: start: 20050209, end: 20050209
  4. LACTULOSE [Concomitant]
  5. WARFARIN SODIUM [Concomitant]
  6. ACYCLOVIR [Concomitant]
  7. CLARITHROMYCIN [Concomitant]

REACTIONS (7)
  - BLOOD PRESSURE DECREASED [None]
  - CHILLS [None]
  - DYSPNOEA [None]
  - HYPERSENSITIVITY [None]
  - RASH [None]
  - URTICARIA [None]
  - WHEEZING [None]
